FAERS Safety Report 7520060-9 (Version None)
Quarter: 2011Q2

REPORT INFORMATION
  Report Type: 
  Country: None (occurrence: None)
  Receive Date: 20110602
  Receipt Date: 20110531
  Transmission Date: 20111010
  Serious: Yes (Life-Threatening, Other)
  Sender: FDA-Public Use
  Company Number: JP-PFIZER INC-2011108345

PATIENT
  Age: 48 Year
  Sex: Female
  Weight: 54.7 kg

DRUGS (4)
  1. LYRICA [Suspect]
     Indication: FIBROMYALGIA
     Dosage: 75 MG, 1X/DAY
     Route: 048
     Dates: start: 20110516, end: 20110518
  2. CODEINE PHOSPHATE [Concomitant]
     Dosage: 2 G, 4X/DAY
     Route: 048
     Dates: start: 20110519
  3. CODEINE PHOSPHATE [Concomitant]
     Indication: PAIN
     Dosage: 2 G, 4X/DAY
     Route: 048
     Dates: start: 20090701, end: 20110515
  4. CODEINE PHOSPHATE [Concomitant]
     Dosage: 2 G, 3X/DAY
     Route: 048
     Dates: start: 20110516, end: 20110518

REACTIONS (3)
  - ASTHENOPIA [None]
  - DYSPNOEA [None]
  - ASTHENIA [None]
